FAERS Safety Report 14020504 (Version 2)
Quarter: 2017Q4

REPORT INFORMATION
  Report Type: Spontaneous
  Country: DE (occurrence: DE)
  Receive Date: 20170928
  Receipt Date: 20171002
  Transmission Date: 20180321
  Serious: Yes (Hospitalization)
  Sender: FDA-Public Use
  Company Number: DE-BAYER-2017-181582

PATIENT
  Age: 31 Year
  Sex: Female

DRUGS (1)
  1. MIRENA [Suspect]
     Active Substance: LEVONORGESTREL
     Indication: ENDOMETRIOSIS
     Dosage: 20 MCG/24HR, CONT
     Route: 015
     Dates: start: 20160118, end: 20170320

REACTIONS (23)
  - Aggression [Not Recovered/Not Resolved]
  - Off label use of device [None]
  - Off label use [None]
  - Panic attack [None]
  - Liver function test increased [None]
  - Myalgia [None]
  - Device use issue [None]
  - Anxiety disorder [Not Recovered/Not Resolved]
  - Abdominal pain lower [Recovered/Resolved with Sequelae]
  - Somnolence [Not Recovered/Not Resolved]
  - Dysuria [Recovered/Resolved with Sequelae]
  - Sleep disorder [Not Recovered/Not Resolved]
  - Fatigue [Not Recovered/Not Resolved]
  - Dyspepsia [None]
  - Dizziness [None]
  - Restlessness [Not Recovered/Not Resolved]
  - Muscle twitching [None]
  - Depression [Not Recovered/Not Resolved]
  - Mood swings [Not Recovered/Not Resolved]
  - Loss of libido [Not Recovered/Not Resolved]
  - Nervousness [Not Recovered/Not Resolved]
  - Disturbance in attention [Not Recovered/Not Resolved]
  - Product use in unapproved indication [None]

NARRATIVE: CASE EVENT DATE: 20160118
